FAERS Safety Report 26082722 (Version 1)
Quarter: 2025Q4

REPORT INFORMATION
  Report Type: Spontaneous
  Country: CA (occurrence: CA)
  Receive Date: 20251124
  Receipt Date: 20251124
  Transmission Date: 20260118
  Serious: Yes (Other)
  Sender: TEVA
  Company Number: CA-TEVA-VS-3395473

PATIENT
  Age: 72 Year
  Sex: Male

DRUGS (8)
  1. PREDNISONE [Suspect]
     Active Substance: PREDNISONE
     Indication: Erosive pustular dermatosis
     Route: 065
  2. DOVONEX [Suspect]
     Active Substance: CALCIPOTRIENE
     Indication: Product used for unknown indication
     Dosage: DOSE FORM: NOT SPECIFIED
     Route: 065
  3. DAPSONE [Suspect]
     Active Substance: DAPSONE
     Indication: Erosive pustular dermatosis
     Route: 065
  4. ISOTRETINOIN [Suspect]
     Active Substance: ISOTRETINOIN
     Indication: Erosive pustular dermatosis
     Dosage: DOSE FORM: NOT SPECIFIED
     Route: 048
  5. MOMETASONE [Suspect]
     Active Substance: MOMETASONE
     Indication: Erosive pustular dermatosis
     Route: 065
  6. PROTOPIC [Suspect]
     Active Substance: TACROLIMUS
     Indication: Erosive pustular dermatosis
     Dosage: DOSE FORM: OINTMENT TOPICAL
     Route: 065
  7. COLCHICINE [Suspect]
     Active Substance: COLCHICINE
     Indication: Erosive pustular dermatosis
     Route: 065
  8. DOXYCYCLINE [Suspect]
     Active Substance: DOXYCYCLINE
     Indication: Erosive pustular dermatosis
     Route: 065

REACTIONS (1)
  - Basal cell carcinoma [Unknown]
